FAERS Safety Report 13531873 (Version 1)
Quarter: 2017Q2

REPORT INFORMATION
  Report Type: Spontaneous
  Country: US (occurrence: US)
  Receive Date: 20170510
  Receipt Date: 20170510
  Transmission Date: 20170830
  Serious: No
  Sender: FDA-Public Use
  Company Number: US-ELI_LILLY_AND_COMPANY-US201705000756

PATIENT
  Age: 57 Year
  Sex: Female

DRUGS (4)
  1. VITAMIN D [Concomitant]
     Active Substance: CHOLECALCIFEROL
     Indication: PRODUCT USED FOR UNKNOWN INDICATION
     Dosage: UNK, WEEKLY (1/W)
  2. HUMALOG KWIKPEN [Suspect]
     Active Substance: INSULIN LISPRO
     Indication: TYPE 2 DIABETES MELLITUS
     Dosage: 14 U, UNKNOWN
     Route: 065
  3. LANTUS [Concomitant]
     Active Substance: INSULIN GLARGINE
     Indication: PRODUCT USED FOR UNKNOWN INDICATION
     Dosage: 32 U, DAILY
  4. LANTUS [Concomitant]
     Active Substance: INSULIN GLARGINE
     Dosage: 38 U, DAILY

REACTIONS (5)
  - Sensation of foreign body [Unknown]
  - Dyspepsia [Unknown]
  - Chest pain [Unknown]
  - Chest discomfort [Unknown]
  - Mass [Unknown]

NARRATIVE: CASE EVENT DATE: 20170406
